FAERS Safety Report 9055977 (Version 2)
Quarter: 2014Q3

REPORT INFORMATION
  Report Type: Spontaneous
  Country: MX (occurrence: MX)
  Receive Date: 20130205
  Receipt Date: 20140728
  Transmission Date: 20150326
  Serious: Yes (Other)
  Sender: FDA-Public Use
  Company Number: PHHY2013MX008075

PATIENT
  Age: 84 Year
  Sex: Female

DRUGS (2)
  1. EXFORGE [Suspect]
     Active Substance: AMLODIPINE BESYLATE\VALSARTAN
     Indication: HYPERTENSION
     Dosage: 1 DF (160/5 MG), DAILY
     Dates: start: 20100701, end: 201303
  2. GLUCOSAMINE [Concomitant]
     Active Substance: GLUCOSAMINE
     Dosage: UNK UKN, UNK

REACTIONS (4)
  - Memory impairment [Not Recovered/Not Resolved]
  - Eye haemorrhage [Recovering/Resolving]
  - Blood pressure increased [Recovered/Resolved]
  - Maculopathy [Recovering/Resolving]

NARRATIVE: CASE EVENT DATE: 2012
